FAERS Safety Report 4529652-2 (Version None)
Quarter: 2004Q4

REPORT INFORMATION
  Report Type: 
  Country: None (occurrence: None)
  Receive Date: 20041214
  Receipt Date: 20041208
  Transmission Date: 20050328
  Serious: Yes (Other)
  Sender: FDA-Public Use
  Company Number: OMPQ-PR-0412L-1420

PATIENT
  Age: 71 Year
  Sex: Male

DRUGS (2)
  1. OMNIPAQUE 140 [Suspect]
     Indication: HEMIPARESIS
     Dosage: 27 ML, SINGLE DOSE, I.A.
     Route: 013
  2. ASPIRIN [Concomitant]

REACTIONS (10)
  - BLINDNESS [None]
  - BLINDNESS CORTICAL [None]
  - BLOOD BRAIN BARRIER DEFECT [None]
  - COMA [None]
  - CONFUSIONAL STATE [None]
  - DISORIENTATION [None]
  - ELECTROENCEPHALOGRAM ABNORMAL [None]
  - MENTAL STATUS CHANGES [None]
  - NUCLEAR MAGNETIC RESONANCE IMAGING BRAIN ABNORMAL [None]
  - VITH NERVE PARALYSIS [None]
